FAERS Safety Report 12936336 (Version 1)
Quarter: 2016Q4

REPORT INFORMATION
  Report Type: Spontaneous
  Country: US (occurrence: US)
  Receive Date: 20161113
  Receipt Date: 20161113
  Transmission Date: 20170207
  Serious: No
  Sender: FDA-Public Use
  Company Number: None

PATIENT
  Age: 64 Year
  Sex: Female
  Weight: 64.3 kg

DRUGS (5)
  1. CALCIUM [Concomitant]
     Active Substance: CALCIUM
  2. JUBLIA [Suspect]
     Active Substance: EFINACONAZOLE
     Indication: ONYCHOMYCOSIS
     Dosage: 2 DROP(S) DAILY TOPICAL
     Route: 061
     Dates: start: 20161028, end: 20161030
  3. FISH OIL [Concomitant]
     Active Substance: FISH OIL
  4. LORATIDINE [Concomitant]
     Active Substance: LORATADINE
  5. MULTIVITAMINS [Concomitant]
     Active Substance: VITAMINS

REACTIONS (3)
  - Paraesthesia oral [None]
  - Genital herpes [None]
  - Vulvovaginal discomfort [None]

NARRATIVE: CASE EVENT DATE: 20161030
